FAERS Safety Report 13752856 (Version 1)
Quarter: 2017Q3

REPORT INFORMATION
  Report Type: Spontaneous
  Country: US (occurrence: US)
  Receive Date: 20170713
  Receipt Date: 20170713
  Transmission Date: 20171127
  Serious: Yes (Hospitalization)
  Sender: FDA-Public Use
  Company Number: None

PATIENT
  Age: 43 Year
  Sex: Female
  Weight: 56.25 kg

DRUGS (1)
  1. XANAX [Suspect]
     Active Substance: ALPRAZOLAM
     Indication: ANXIETY
     Dates: end: 20140315

REACTIONS (8)
  - Vomiting [None]
  - Suicidal ideation [None]
  - Muscle spasms [None]
  - Seizure [None]
  - Skin burning sensation [None]
  - Diarrhoea [None]
  - Vision blurred [None]
  - Hallucination [None]

NARRATIVE: CASE EVENT DATE: 20140315
